FAERS Safety Report 15920257 (Version 3)
Quarter: 2019Q1

REPORT INFORMATION
  Report Type: Spontaneous
  Country: JP (occurrence: JP)
  Receive Date: 20190205
  Receipt Date: 20190327
  Transmission Date: 20190417
  Serious: Yes (Other)
  Sender: FDA-Public Use
  Company Number: JP-TAKEDA-2019TUS004292

PATIENT
  Age: 75 Year
  Sex: Male

DRUGS (4)
  1. VELCADE [Suspect]
     Active Substance: BORTEZOMIB
     Indication: PLASMA CELL MYELOMA
     Dosage: UNK, 2/WEEK
     Route: 058
     Dates: start: 20190109, end: 20190119
  2. DECADRON [Concomitant]
     Active Substance: DEXAMETHASONE
     Indication: PLASMA CELL MYELOMA
     Dosage: 20 MILLIGRAM, 2/WEEK
     Route: 065
     Dates: start: 20190109, end: 20190123
  3. OXYCODONE [Suspect]
     Active Substance: OXYCODONE
     Indication: FRACTURE PAIN
     Dosage: UNK
     Route: 048
     Dates: start: 20190107
  4. REVLIMID [Concomitant]
     Active Substance: LENALIDOMIDE
     Indication: PLASMA CELL MYELOMA
     Dosage: 10 MILLIGRAM, QD
     Route: 048
     Dates: start: 20190123, end: 20190123

REACTIONS (1)
  - Hyponatraemia [Recovered/Resolved]

NARRATIVE: CASE EVENT DATE: 20190115
